FAERS Safety Report 5415766-1 (Version None)
Quarter: 2007Q3

REPORT INFORMATION
  Report Type: 
  Country: None (occurrence: None)
  Receive Date: 20070815
  Receipt Date: 20070803
  Transmission Date: 20080115
  Serious: Yes (Other)
  Sender: FDA-Public Use
  Company Number: US-PFIZER INC-2007065755

PATIENT
  Sex: Male
  Weight: 94.3 kg

DRUGS (2)
  1. CHANTIX [Suspect]
     Indication: SMOKING CESSATION THERAPY
     Dates: start: 20061101, end: 20070731
  2. KLONOPIN [Concomitant]
     Indication: PANIC DISORDER

REACTIONS (6)
  - AXILLARY MASS [None]
  - HEPATITIS C [None]
  - PAIN [None]
  - SWELLING [None]
  - TOBACCO USER [None]
  - WEIGHT INCREASED [None]
